FAERS Safety Report 5466920-4 (Version None)
Quarter: 2007Q3

REPORT INFORMATION
  Report Type: 
  Country: None (occurrence: None)
  Receive Date: 20070921
  Receipt Date: 20070921
  Transmission Date: 20080115
  Serious: Yes (Other)
  Sender: FDA-Public Use
  Company Number: None

PATIENT
  Age: 59 Year
  Sex: Male
  Weight: 86 kg

DRUGS (16)
  1. VORICONAZOLE 200MG PFIZER [Suspect]
     Indication: FUNGAL INFECTION
     Dosage: 200MG BID PO
     Route: 048
     Dates: start: 20070828, end: 20070831
  2. ACYCLOVIR [Concomitant]
  3. CIPROFLOXACIN [Concomitant]
  4. PIPERACILLIN AND TAZOBACTAM [Concomitant]
  5. NEUPOGEN [Concomitant]
  6. INSULIN GLARGINE [Concomitant]
  7. REGULAR INSULIN [Concomitant]
  8. ADVAIR DISKUS 100/50 [Concomitant]
  9. TESSALON PEARLES [Concomitant]
  10. ESOMEPRAZOLE MAGNESIUM [Concomitant]
  11. SALT-N-SODA [Concomitant]
  12. VANDERBILT MOUTHWASH [Concomitant]
  13. MORPHINE SULFATE [Concomitant]
  14. MORPHINE [Concomitant]
  15. OXYCODONE HCL [Concomitant]
  16. GUAIFENESIN [Concomitant]

REACTIONS (6)
  - ABNORMAL BEHAVIOUR [None]
  - AGGRESSION [None]
  - AGITATION [None]
  - FALL [None]
  - HALLUCINATIONS, MIXED [None]
  - SCREAMING [None]
